FAERS Safety Report 7574298-5 (Version None)
Quarter: 2011Q2

REPORT INFORMATION
  Report Type: 
  Country: None (occurrence: None)
  Receive Date: 20110627
  Receipt Date: 20110616
  Transmission Date: 20111010
  Serious: Yes (Disabling, Other)
  Sender: FDA-Public Use
  Company Number: FR-BAXTER-2011BH019917

PATIENT
  Age: 69 Year
  Sex: Female

DRUGS (7)
  1. ONDANSERTRON HYDROCHLORIDE [Concomitant]
     Indication: PRODUCT USED FOR UNKNOWN INDICATION
     Route: 042
     Dates: start: 20100902, end: 20101125
  2. CYCLOPHOSPHAMIDE [Suspect]
     Indication: BREAST CANCER
     Route: 042
     Dates: start: 20100902, end: 20101125
  3. TAXOTERE [Suspect]
     Indication: BREAST CANCER
     Route: 042
     Dates: start: 20100902, end: 20100923
  4. SOLU-MEDROL [Concomitant]
     Indication: PRODUCT USED FOR UNKNOWN INDICATION
     Route: 042
  5. TAXOTERE [Suspect]
     Route: 042
     Dates: start: 20101014, end: 20101014
  6. PRIMPERAN TAB [Concomitant]
     Indication: PRODUCT USED FOR UNKNOWN INDICATION
     Route: 042
     Dates: start: 20100902, end: 20101125
  7. TAXOTERE [Suspect]
     Route: 042
     Dates: start: 20101104, end: 20101125

REACTIONS (3)
  - ONYCHOLYSIS [None]
  - PERIPHERAL SENSORIMOTOR NEUROPATHY [None]
  - FEBRILE NEUTROPENIA [None]
